FAERS Safety Report 9061219 (Version 1)
Quarter: 2013Q1

REPORT INFORMATION
  Report Type: Spontaneous
  Country: US (occurrence: None)
  Receive Date: 20130206
  Receipt Date: 20130206
  Transmission Date: 20140127
  Serious: Yes (Other)
  Sender: FDA-Public Use
  Company Number: None

PATIENT
  Age: 61 Year
  Sex: Female
  Weight: 52.62 kg

DRUGS (1)
  1. FENTANYL [Suspect]
     Route: 062
     Dates: start: 201107, end: 20130111

REACTIONS (1)
  - Drug ineffective [None]
